FAERS Safety Report 23645196 (Version 1)
Quarter: 2024Q1

REPORT INFORMATION
  Report Type: Spontaneous
  Country: US (occurrence: US)
  Receive Date: 20240318
  Receipt Date: 20240318
  Transmission Date: 20240410
  Serious: No
  Sender: FDA-Public Use
  Company Number: US-GE HEALTHCARE-2024CSU002025

PATIENT
  Age: 57 Year
  Sex: Male
  Weight: 92.517 kg

DRUGS (1)
  1. OMNIPAQUE [Suspect]
     Active Substance: IOHEXOL
     Indication: Computerised tomogram abdomen
     Dosage: 100 ML, TOTAL
     Route: 042

REACTIONS (2)
  - Urticaria [Recovered/Resolved]
  - Rash [Unknown]

NARRATIVE: CASE EVENT DATE: 20240226
